FAERS Safety Report 14354957 (Version 1)
Quarter: 2018Q1

REPORT INFORMATION
  Report Type: Spontaneous
  Country: US (occurrence: US)
  Receive Date: 20180104
  Receipt Date: 20180104
  Transmission Date: 20180509
  Serious: Yes (Other)
  Sender: FDA-Public Use
  Company Number: None

PATIENT
  Age: 35 Year
  Sex: Male
  Weight: 92.25 kg

DRUGS (1)
  1. GOLD BOND ORIGINAL STRENGTH POWDER [Suspect]
     Active Substance: MENTHOL\ZINC OXIDE
     Indication: SKIN DISORDER
     Route: 061
     Dates: start: 20171226, end: 20171229

REACTIONS (2)
  - Application site vesicles [None]
  - Application site burn [None]

NARRATIVE: CASE EVENT DATE: 20171227
